FAERS Safety Report 23142390 (Version 4)
Quarter: 2024Q3

REPORT INFORMATION
  Report Type: Report from Study
  Country: DE (occurrence: DE)
  Receive Date: 20231103
  Receipt Date: 20240702
  Transmission Date: 20241017
  Serious: Yes (Other)
  Sender: NOVARTIS
  Company Number: DE-002147023-NVSC2023DE232554

PATIENT
  Sex: Male
  Weight: 103 kg

DRUGS (2)
  1. COSENTYX [Suspect]
     Active Substance: SECUKINUMAB
     Indication: Psoriasis
     Dosage: 300 MG, QMO (4 WKS. ON 1 D/WK)
     Route: 058
     Dates: start: 20220125
  2. COSENTYX [Suspect]
     Active Substance: SECUKINUMAB
     Indication: Psoriatic arthropathy

REACTIONS (2)
  - Taeniasis [Recovered/Resolved]
  - Sebaceous carcinoma [Recovered/Resolved]

NARRATIVE: CASE EVENT DATE: 20230111
